FAERS Safety Report 5869891-1 (Version None)
Quarter: 2008Q3

REPORT INFORMATION
  Report Type: 
  Country: None (occurrence: None)
  Receive Date: 20080904
  Receipt Date: 20080904
  Transmission Date: 20090109
  Serious: No
  Sender: FDA-Public Use
  Company Number: None

PATIENT
  Age: 68 Year
  Sex: Female
  Weight: 77 kg

DRUGS (7)
  1. HEPARIN [Suspect]
     Indication: INTRAOPERATIVE CARE
     Dates: start: 20080811
  2. MIDAZOLAM HCL [Concomitant]
  3. FENTANYL-25 [Concomitant]
  4. NITROGLYCERIN [Concomitant]
  5. NEOSYNEPHRINE [Concomitant]
  6. INTEGRILIN [Concomitant]
  7. ISOVUE-300 [Concomitant]

REACTIONS (1)
  - NO THERAPEUTIC RESPONSE [None]
